FAERS Safety Report 5636257-9 (Version None)
Quarter: 2008Q1

REPORT INFORMATION
  Report Type: 
  Country: None (occurrence: None)
  Receive Date: 20080220
  Receipt Date: 20080220
  Transmission Date: 20080703
  Serious: Yes (Other)
  Sender: FDA-Public Use
  Company Number: None

PATIENT
  Age: 57 Year
  Sex: Female
  Weight: 52.6173 kg

DRUGS (2)
  1. CHANTIX [Suspect]
     Indication: SMOKER
     Dosage: 1MG ONE DAILY ORAL
     Route: 048
     Dates: start: 20071112
  2. CHANTIX [Suspect]
     Indication: SMOKER
     Dosage: 1MG ONE DAILY ORAL
     Route: 048
     Dates: start: 20080112

REACTIONS (2)
  - DEPRESSION SUICIDAL [None]
  - WITHDRAWAL SYNDROME [None]
